FAERS Safety Report 5220789-1 (Version None)
Quarter: 2007Q1

REPORT INFORMATION
  Report Type: 
  Country: None (occurrence: None)
  Receive Date: 20070126
  Receipt Date: 20070116
  Transmission Date: 20070707
  Serious: Yes (Disabling)
  Sender: FDA-Public Use
  Company Number: PHRM2007FR00560

PATIENT
  Age: 52 Year
  Sex: Female

DRUGS (6)
  1. ENDOXAN [Concomitant]
  2. FLUOROURACIL [Concomitant]
  3. XELODA [Concomitant]
  4. MITOXANTRONE [Concomitant]
  5. TAXOTERE [Concomitant]
  6. ZOMETA [Suspect]
     Indication: METASTASES TO BONE
     Dosage: 4 MG, QMO
     Route: 042
     Dates: start: 20020215

REACTIONS (1)
  - OSTEONECROSIS [None]
